FAERS Safety Report 6092108-2 (Version None)
Quarter: 2009Q1

REPORT INFORMATION
  Report Type: 
  Country: None (occurrence: None)
  Receive Date: 20090219
  Receipt Date: 20081117
  Transmission Date: 20090719
  Serious: No
  Sender: FDA-Public Use
  Company Number: WAES 0809USA03204

PATIENT
  Sex: Female
  Weight: 83.9154 kg

DRUGS (2)
  1. JANUVIA [Suspect]
     Indication: TYPE 2 DIABETES MELLITUS
     Dosage: 50 MG/DAILY/PO; 100 MG/DAILY/PO
     Route: 048
     Dates: start: 20080117
  2. JANUVIA [Suspect]
     Indication: TYPE 2 DIABETES MELLITUS
     Dosage: 50 MG/DAILY/PO; 100 MG/DAILY/PO
     Route: 048
     Dates: start: 20080213

REACTIONS (1)
  - BLOOD GLUCOSE DECREASED [None]
